FAERS Safety Report 7807130-2 (Version None)
Quarter: 2011Q4

REPORT INFORMATION
  Report Type: 
  Country: None (occurrence: None)
  Receive Date: 20111011
  Receipt Date: 20110928
  Transmission Date: 20120403
  Serious: Yes (Hospitalization)
  Sender: FDA-Public Use
  Company Number: US-ELI_LILLY_AND_COMPANY-US201006001065

PATIENT
  Sex: Male

DRUGS (10)
  1. FORTEO [Suspect]
     Indication: OSTEOPOROSIS
     Dosage: 20 UG, QD
     Route: 065
     Dates: start: 20090901
  2. FLEXERIL [Concomitant]
     Dosage: 10 MG, 2/D
  3. VITAMIN D [Concomitant]
  4. COUMADIN [Concomitant]
  5. NEURONTIN [Concomitant]
  6. FORTEO [Suspect]
     Dosage: 20 UG, QD
     Route: 065
  7. ABILIFY [Concomitant]
  8. SEROQUEL [Concomitant]
     Dosage: 100 MG, UNKNOWN
  9. AMITRIPTYLINE HCL [Concomitant]
  10. OXYCODONE HCL [Concomitant]
     Dosage: 5 MG, UNKNOWN

REACTIONS (2)
  - SPINAL NERVE STIMULATOR IMPLANTATION [None]
  - OSTEOARTHRITIS [None]
